FAERS Safety Report 10638355 (Version 1)
Quarter: 2014Q4

REPORT INFORMATION
  Report Type: Spontaneous
  Country: FR (occurrence: FR)
  Receive Date: 20141208
  Receipt Date: 20141208
  Transmission Date: 20150529
  Serious: Yes (Hospitalization, Other)
  Sender: FDA-Public Use
  Company Number: FR-GLAXOSMITHKLINE-FR2014GSK031278

PATIENT
  Age: 13 Year
  Sex: Female
  Weight: 58 kg

DRUGS (7)
  1. ZELITREX [Suspect]
     Active Substance: VALACYCLOVIR HYDROCHLORIDE
     Indication: PRODUCT USED FOR UNKNOWN INDICATION
     Dosage: 500 MG, BID
     Dates: start: 20140429, end: 20140726
  2. INEXIUM [Suspect]
     Active Substance: ESOMEPRAZOLE
     Indication: PRODUCT USED FOR UNKNOWN INDICATION
     Dosage: 20 MG, QOD
     Dates: start: 20140429, end: 20140726
  3. NOMEGESTROL [Concomitant]
     Active Substance: NOMEGESTROL
     Dosage: UNK
  4. NEORAL [Suspect]
     Active Substance: CYCLOSPORINE
     Indication: PRODUCT USED FOR UNKNOWN INDICATION
     Dosage: UNK
     Route: 048
     Dates: start: 20140429
  5. POSACONAZOLE [Suspect]
     Active Substance: POSACONAZOLE
     Indication: PRODUCT USED FOR UNKNOWN INDICATION
     Dosage: 200 MG, TID
     Dates: start: 20140429, end: 20140726
  6. ANTILYMPHOCYTE GLOBULIN [Suspect]
     Active Substance: THYMOCYTE IMMUNE GLOBULIN NOS
     Indication: APLASTIC ANAEMIA
     Dosage: 50 UNK, Z
     Route: 042
     Dates: start: 20140424, end: 20140427
  7. DUPHALAC [Concomitant]
     Active Substance: LACTULOSE
     Dosage: 2 UNK, BID

REACTIONS (6)
  - Febrile bone marrow aplasia [Unknown]
  - Hyperthermia [Recovered/Resolved]
  - Vomiting [Unknown]
  - Renal failure [Unknown]
  - Hypertension [Recovered/Resolved]
  - Rhinitis [Not Recovered/Not Resolved]

NARRATIVE: CASE EVENT DATE: 20140425
